FAERS Safety Report 4351361-3 (Version None)
Quarter: 2004Q2

REPORT INFORMATION
  Report Type: 
  Country: None (occurrence: None)
  Receive Date: 20040503
  Receipt Date: 20040421
  Transmission Date: 20050107
  Serious: Yes (Hospitalization)
  Sender: FDA-Public Use
  Company Number: PHRM2004FR01595

PATIENT
  Age: 10 Year
  Sex: Male
  Weight: 37 kg

DRUGS (5)
  1. TEGRETOL [Suspect]
     Indication: EPILEPSY
     Dosage: 200 MG, QD
     Route: 048
     Dates: start: 20030801, end: 20040118
  2. TEGRETOL [Suspect]
     Dosage: 200 MG, BID
     Route: 048
     Dates: start: 20040119
  3. DIACOMIT [Suspect]
     Indication: EPILEPSY
     Route: 048
     Dates: start: 20031201
  4. URBANYL [Concomitant]
     Route: 048
     Dates: start: 20030801
  5. LAMICTAL [Concomitant]
     Dosage: UNK, UNK
     Route: 048
     Dates: start: 20030801

REACTIONS (5)
  - ANTICONVULSANT DRUG LEVEL ABOVE THERAPEUTIC [None]
  - BALANCE DISORDER [None]
  - DRUG INTERACTION [None]
  - NYSTAGMUS [None]
  - SOMNOLENCE [None]
